FAERS Safety Report 6865143-1 (Version None)
Quarter: 2010Q3

REPORT INFORMATION
  Report Type: 
  Country: None (occurrence: None)
  Receive Date: 20100721
  Receipt Date: 20080415
  Transmission Date: 20110219
  Serious: No
  Sender: FDA-Public Use
  Company Number: US-PFIZER INC-2008033760

PATIENT
  Sex: Female

DRUGS (4)
  1. CHANTIX [Suspect]
     Dates: start: 20080414
  2. CYMBALTA [Concomitant]
     Indication: DEPRESSION
  3. VITAMIN C [Concomitant]
     Indication: ARTHRALGIA
  4. NAPRELAN [Concomitant]
     Indication: ARTHRALGIA

REACTIONS (4)
  - DIARRHOEA [None]
  - INCORRECT DOSE ADMINISTERED [None]
  - INSOMNIA [None]
  - NAUSEA [None]
